FAERS Safety Report 16465362 (Version 2)
Quarter: 2019Q2

REPORT INFORMATION
  Report Type: Spontaneous
  Country: US (occurrence: US)
  Receive Date: 20190621
  Receipt Date: 20190628
  Transmission Date: 20190711
  Serious: Yes (Hospitalization)
  Sender: FDA-Public Use
  Company Number: US-ACTELION-A-NJ2019-191540

PATIENT
  Sex: Male
  Weight: 136.51 kg

DRUGS (2)
  1. OPSUMIT [Suspect]
     Active Substance: MACITENTAN
     Indication: PULMONARY ARTERIAL HYPERTENSION
     Dosage: 10 MG, QD
     Route: 048
  2. REMODULIN [Concomitant]
     Active Substance: TREPROSTINIL

REACTIONS (8)
  - Polyuria [Unknown]
  - Therapy change [Unknown]
  - Headache [Unknown]
  - Fluid overload [Unknown]
  - Complication associated with device [Unknown]
  - Catheter site pain [Unknown]
  - Drug ineffective [Unknown]
  - Neck pain [Unknown]
